FAERS Safety Report 12560925 (Version 1)
Quarter: 2016Q3

REPORT INFORMATION
  Report Type: Spontaneous
  Country: JP (occurrence: JP)
  Receive Date: 20160715
  Receipt Date: 20160715
  Transmission Date: 20161109
  Serious: Yes (Other)
  Sender: FDA-Public Use
  Company Number: JP-ELI_LILLY_AND_COMPANY-JP201607003016

PATIENT
  Age: 75 Year
  Sex: Male

DRUGS (2)
  1. PACLITAXEL. [Suspect]
     Active Substance: PACLITAXEL
     Indication: GASTRIC CANCER STAGE III
     Dosage: UNK
     Route: 042
     Dates: start: 201506
  2. CYRAMZA [Suspect]
     Active Substance: RAMUCIRUMAB
     Indication: GASTRIC CANCER STAGE III
     Dosage: UNK, UNKNOWN
     Route: 042
     Dates: start: 201506

REACTIONS (4)
  - Gastric fistula [Unknown]
  - Impaired healing [Unknown]
  - Gastrointestinal ulcer [Unknown]
  - Colonic fistula [Unknown]

NARRATIVE: CASE EVENT DATE: 2015
